FAERS Safety Report 8262777 (Version 3)
Quarter: 2013Q4

REPORT INFORMATION
  Report Type: Report from Study
  Country: FR (occurrence: FR)
  Receive Date: 20111124
  Receipt Date: 20131205
  Transmission Date: 20140711
  Serious: Yes (Hospitalization)
  Sender: FDA-Public Use
  Company Number: FR-ROCHE-1011402

PATIENT
  Age: 72 Year
  Sex: Male
  Weight: 90 kg

DRUGS (3)
  1. MYCOPHENOLATE MOFETIL [Suspect]
     Indication: TRANSPLANT REJECTION
     Route: 048
     Dates: start: 20110618
  2. EVEROLIMUS [Suspect]
     Indication: TRANSPLANT REJECTION
     Route: 048
     Dates: start: 20110623, end: 20111031
  3. PREDNISONE [Suspect]
     Indication: TRANSPLANT REJECTION
     Route: 048
     Dates: start: 20110623

REACTIONS (2)
  - Transplant rejection [Not Recovered/Not Resolved]
  - Transplant rejection [Not Recovered/Not Resolved]
